FAERS Safety Report 24732969 (Version 1)
Quarter: 2024Q4

REPORT INFORMATION
  Report Type: Spontaneous
  Country: US (occurrence: US)
  Receive Date: 20241213
  Receipt Date: 20241213
  Transmission Date: 20250115
  Serious: No
  Sender: SANOFI AVENTIS
  Company Number: US-SA-2024SA366403

PATIENT
  Sex: Male

DRUGS (8)
  1. ZOLPIDEM TARTRATE [Suspect]
     Active Substance: ZOLPIDEM TARTRATE
     Dosage: UNK
  2. CIMZIA [Concomitant]
     Active Substance: CERTOLIZUMAB PEGOL
     Dosage: UNK
  3. CYANOCOBALAMIN [Concomitant]
     Active Substance: CYANOCOBALAMIN
  4. FOLIC ACID [Concomitant]
     Active Substance: FOLIC ACID
  5. FERROUS SULFATE [Concomitant]
     Active Substance: FERROUS SULFATE
  6. LOPERAMIDE HYDROCHLORIDE [Concomitant]
     Active Substance: LOPERAMIDE HYDROCHLORIDE
  7. ESOMEPRAZOLE [Concomitant]
     Active Substance: ESOMEPRAZOLE
  8. ZOFRAN [Concomitant]
     Active Substance: ONDANSETRON HYDROCHLORIDE

REACTIONS (2)
  - Dehydration [Unknown]
  - Vomiting projectile [Unknown]
